FAERS Safety Report 19451295 (Version 2)
Quarter: 2022Q1

REPORT INFORMATION
  Report Type: Report from Study
  Country: IT (occurrence: IT)
  Receive Date: 20210623
  Receipt Date: 20220301
  Transmission Date: 20220423
  Serious: Yes (Other)
  Sender: FDA-Public Use
  Company Number: IT-CELLTRION INC.-2021IT008244

PATIENT

DRUGS (33)
  1. TRASTUZUMAB [Suspect]
     Active Substance: TRASTUZUMAB
     Indication: HER2 positive breast cancer
     Dosage: 560 MG, EVERY 3 WEEKS
     Route: 042
     Dates: start: 20190314, end: 20200314
  2. TRASTUZUMAB [Suspect]
     Active Substance: TRASTUZUMAB
     Dosage: 480 MG, EVERY 3 WEEKS
     Route: 042
     Dates: start: 20190408, end: 20200311
  3. TRASTUZUMAB [Suspect]
     Active Substance: TRASTUZUMAB
     Dosage: 6 MG/KG, EVERY 3 WEEKS
     Route: 042
     Dates: start: 20210113, end: 20210617
  4. TRASTUZUMAB [Suspect]
     Active Substance: TRASTUZUMAB
     Dosage: 2 MG/KG, EVERY 1 WEEK
     Route: 042
     Dates: start: 20201215, end: 20210107
  5. PACLITAXEL [Suspect]
     Active Substance: PACLITAXEL
     Indication: HER2 positive breast cancer
     Dosage: 90 MG, EVERY 1 WEEK
     Route: 042
     Dates: start: 20190617, end: 20190722
  6. PACLITAXEL [Suspect]
     Active Substance: PACLITAXEL
     Dosage: 130 MG, EVERY 1 WEEK
     Route: 042
     Dates: start: 20190314, end: 20190610
  7. PERTUZUMAB [Suspect]
     Active Substance: PERTUZUMAB
     Indication: HER2 positive breast cancer
     Dosage: 420 MG, EVERY 3 WEEKS
     Route: 042
     Dates: start: 20190408, end: 20200311
  8. PERTUZUMAB [Suspect]
     Active Substance: PERTUZUMAB
     Dosage: 840 MG, EVERY 3 WEEKS (MOST RECENT DOSE PRIOR TO THE EVENT: 08/APR/2019)
     Route: 042
     Dates: start: 20190314, end: 20190314
  9. CHLORPHENIRAMINE MALEATE [Concomitant]
     Active Substance: CHLORPHENIRAMINE MALEATE
     Dosage: 1 AMPULE, EVERY 1 WEEK
     Route: 042
     Dates: start: 20190314, end: 20190722
  10. ALIZAPRIDE [Concomitant]
     Active Substance: ALIZAPRIDE
     Dosage: 2 AMPULE, EVERY 1 WEEK
     Route: 042
     Dates: start: 20190502, end: 20190722
  11. ALIZAPRIDE [Concomitant]
     Active Substance: ALIZAPRIDE
     Dosage: 100 MG
     Route: 042
     Dates: start: 20201216
  12. RANITIDINE [Concomitant]
     Active Substance: RANITIDINE
     Dosage: 1 AMPULE, EVERY 1 WEEK
     Route: 042
     Dates: start: 20190314, end: 20190722
  13. CHOLECALCIFEROL [Concomitant]
     Active Substance: CHOLECALCIFEROL
     Dosage: 1 AMPULE, EVERY 1 MONTH
     Route: 048
  14. HYDROCORTISONE [Concomitant]
     Active Substance: HYDROCORTISONE
     Dosage: 1 AMPULE, EVERY 1 WEEK
     Route: 042
     Dates: start: 20190314, end: 20190722
  15. HEPARIN SODIUM [Concomitant]
     Active Substance: HEPARIN SODIUM
     Dosage: 2 AMPULE
     Route: 042
     Dates: start: 20190314, end: 20190722
  16. IVABRADINE [Concomitant]
     Active Substance: IVABRADINE
     Dosage: 7.5 MG, EVERY 0.5 DAY
     Route: 048
     Dates: start: 20151118
  17. CYMBALTA [Concomitant]
     Active Substance: DULOXETINE HYDROCHLORIDE
     Dosage: 30 MG, EVERY 1 DAY
     Route: 048
     Dates: end: 20190610
  18. BISOPROLOL [Concomitant]
     Active Substance: BISOPROLOL
     Dosage: 1.25 MG
     Route: 048
     Dates: start: 20151118
  19. QUETIAPINE [Concomitant]
     Active Substance: QUETIAPINE
     Dosage: 50 MG, EVERY 1 DAY
     Route: 048
  20. PEGFILGRASTIM [Concomitant]
     Active Substance: PEGFILGRASTIM
     Dosage: 30 MU
     Route: 058
     Dates: start: 20210124, end: 20210216
  21. CLARITHROMYCIN [Concomitant]
     Active Substance: CLARITHROMYCIN
     Dosage: 500 MG, EVERY 1 DAY
     Route: 048
     Dates: start: 202010, end: 202011
  22. PREDNISONE [Concomitant]
     Active Substance: PREDNISONE
     Dosage: 12.5 MG, EVERY 1 DAY
     Route: 048
     Dates: start: 20200709, end: 20200723
  23. URSODIOL [Concomitant]
     Active Substance: URSODIOL
     Dosage: 450 MG, EVERY 1 DAY
     Route: 048
     Dates: start: 20200709, end: 20201125
  24. DEXAMETHASONE [Concomitant]
     Active Substance: DEXAMETHASONE
     Dosage: 8 MG
     Dates: start: 20210823, end: 20210823
  25. DEXAMETHASONE [Concomitant]
     Active Substance: DEXAMETHASONE
     Dosage: 2 MG
     Route: 048
     Dates: start: 20210830, end: 20210831
  26. DEXAMETHASONE [Concomitant]
     Active Substance: DEXAMETHASONE
     Dosage: 4 MG
     Route: 050
     Dates: start: 20210824, end: 20210829
  27. ESOMEPRAZOLE [Concomitant]
     Active Substance: ESOMEPRAZOLE
     Indication: Oesophagitis
     Dosage: 20 MG, EVERY 2 DAYS
     Route: 048
     Dates: start: 202011, end: 202011
  28. ESOMEPRAZOLE [Concomitant]
     Active Substance: ESOMEPRAZOLE
     Dosage: 40 MG, EVERY 0.5 DAY
     Route: 048
     Dates: start: 20200422, end: 20200501
  29. ESOMEPRAZOLE [Concomitant]
     Active Substance: ESOMEPRAZOLE
     Dosage: 20 MG, EVERY 1 DAY
     Route: 048
     Dates: start: 202010, end: 202011
  30. ESOMEPRAZOLE [Concomitant]
     Active Substance: ESOMEPRAZOLE
     Dosage: 40 MG, EVERY 1 DAY
     Route: 048
     Dates: start: 20200502, end: 20200701
  31. AMOXICILLIN [Concomitant]
     Active Substance: AMOXICILLIN
     Dosage: 1 GRAM, 0.5 DAY
     Route: 048
     Dates: start: 202010, end: 202011
  32. PYLERA [Concomitant]
     Active Substance: BISMUTH SUBCITRATE POTASSIUM\METRONIDAZOLE\TETRACYCLINE HYDROCHLORIDE
     Dosage: 3 DF, EVERY 0.25 DAY
     Route: 048
     Dates: start: 20200422, end: 20200501
  33. ONDANSETRON [Concomitant]
     Active Substance: ONDANSETRON
     Dosage: 8 MG, 1/WEEK
     Route: 042
     Dates: start: 20190314, end: 20190424

REACTIONS (2)
  - Neuropathy peripheral [Recovered/Resolved]
  - Off label use [Unknown]

NARRATIVE: CASE EVENT DATE: 20190617
